FAERS Safety Report 8834614 (Version 1)
Quarter: 2012Q4

REPORT INFORMATION
  Report Type: 
  Country: US (occurrence: US)
  Receive Date: 20121010
  Receipt Date: 20121010
  Transmission Date: 20130627
  Serious: No
  Sender: FDA-Public Use
  Company Number: US-BAYER-2012-104786

PATIENT
  Age: 70 Year
  Sex: Male
  Weight: 111 kg

DRUGS (9)
  1. ALEVE CAPLET/TABLET,MIDOL EXTENDED RELIEF CAPLET [Suspect]
     Indication: ARTHRITIS
  2. ALEVE CAPLET/TABLET,MIDOL EXTENDED RELIEF CAPLET [Suspect]
     Indication: SLEEP DISORDER THERAPY
  3. METFORMIN [Concomitant]
  4. GLIMEPIRIDE [Concomitant]
  5. ATENOLOL [Concomitant]
  6. AMLODIPINE [Concomitant]
  7. CALTRATE WITH VITAMIN D [Concomitant]
  8. LOSARTAN [Concomitant]
  9. POTASSIUM [Concomitant]

REACTIONS (2)
  - Therapeutic response unexpected [None]
  - Therapeutic response unexpected [None]
